FAERS Safety Report 25646801 (Version 2)
Quarter: 2025Q3

REPORT INFORMATION
  Report Type: Report from Study
  Country: US (occurrence: US)
  Receive Date: 20250805
  Receipt Date: 20250926
  Transmission Date: 20251021
  Serious: Yes (Hospitalization)
  Sender: BLUEPRINT MEDICINES
  Company Number: US-Blueprint Medicines Corporation-2025-AER-01668

PATIENT
  Age: 65 Year
  Sex: Male

DRUGS (9)
  1. AVAPRITINIB [Suspect]
     Active Substance: AVAPRITINIB
     Indication: Oesophageal carcinoma
     Dosage: 28-DAY CYCLES
     Route: 048
     Dates: start: 20250520, end: 20250710
  2. LEVOTHYROXINE [Concomitant]
     Active Substance: LEVOTHYROXINE
     Indication: Hypothyroidism
     Route: 048
     Dates: start: 20250206
  3. ZOFRAN ODT [Concomitant]
     Active Substance: ONDANSETRON HYDROCHLORIDE
     Indication: Prophylaxis of nausea and vomiting
     Route: 048
     Dates: start: 20230501
  4. PROTONIX [Concomitant]
     Active Substance: PANTOPRAZOLE SODIUM
     Indication: Prophylaxis
     Route: 048
     Dates: start: 20231101
  5. KLOR-CON [Concomitant]
     Active Substance: POTASSIUM CHLORIDE
     Indication: Prophylaxis
     Route: 048
     Dates: start: 20250203
  6. XARELTO [Concomitant]
     Active Substance: RIVAROXABAN
     Indication: Atrial fibrillation
     Route: 048
     Dates: start: 20230406
  7. DIOVAN [Concomitant]
     Active Substance: VALSARTAN
     Indication: Hypertension
     Route: 048
     Dates: start: 20250128
  8. LASIX [Concomitant]
     Active Substance: FUROSEMIDE
     Indication: Periorbital oedema
     Route: 048
     Dates: start: 20250627
  9. metoprolol succinate (Toprol XL) [Concomitant]
     Indication: Hypertension
     Route: 048
     Dates: start: 20250702

REACTIONS (1)
  - Gastrointestinal haemorrhage [Recovered/Resolved]

NARRATIVE: CASE EVENT DATE: 20250723
